FAERS Safety Report 16569495 (Version 1)
Quarter: 2019Q3

REPORT INFORMATION
  Report Type: Report from Study
  Country: US (occurrence: US)
  Receive Date: 20190715
  Receipt Date: 20190715
  Transmission Date: 20191004
  Serious: No
  Sender: FDA-Public Use
  Company Number: PHEH2019US028471

PATIENT
  Sex: Female

DRUGS (1)
  1. ENTRESTO [Suspect]
     Active Substance: SACUBITRIL\VALSARTAN
     Indication: CARDIAC FAILURE
     Dosage: 0.5 DF, (SACUBITRIL 24 MG AND VALSARTAN 26 MG) BID
     Route: 048

REACTIONS (7)
  - Paraesthesia oral [Unknown]
  - Wrong technique in product usage process [Unknown]
  - Back pain [Unknown]
  - Feeling abnormal [Unknown]
  - Constipation [Unknown]
  - Paraesthesia [Unknown]
  - Product prescribing error [Unknown]
